FAERS Safety Report 15027613 (Version 2)
Quarter: 2020Q1

REPORT INFORMATION
  Report Type: Spontaneous
  Country: US (occurrence: US)
  Receive Date: 20180619
  Receipt Date: 20200102
  Transmission Date: 20200409
  Serious: Yes (Other)
  Sender: FDA-Public Use
  Company Number: US-HORIZON-PRE-0260-2018

PATIENT
  Age: 7 Month
  Sex: Female

DRUGS (3)
  1. VIGABATRIN. [Concomitant]
     Active Substance: VIGABATRIN
  2. PREDNISONE. [Suspect]
     Active Substance: PREDNISONE
     Indication: INFANTILE SPASMS
     Dosage: 8 MG/KG/DAY
  3. ADRENOCORTICOTROPIC HORMONE (ACTH) [Suspect]
     Active Substance: CORTICOTROPIN
     Indication: INFANTILE SPASMS
     Dosage: 150 U/M2

REACTIONS (2)
  - Cushing^s syndrome [Unknown]
  - Epidural lipomatosis [Unknown]
